FAERS Safety Report 8758917 (Version 2)
Quarter: 2014Q1

REPORT INFORMATION
  Report Type: Spontaneous
  Country: JP (occurrence: JP)
  Receive Date: 20120829
  Receipt Date: 20140102
  Transmission Date: 20141002
  Serious: Yes (Other)
  Sender: FDA-Public Use
  Company Number: JP-JNJFOC-20120812819

PATIENT
  Sex: Female

DRUGS (1)
  1. ITRIZOLE [Suspect]
     Indication: PRODUCT USED FOR UNKNOWN INDICATION
     Dosage: CYCLE 1 OF PULSE THERAPY COMPLETED AND CYCLE 2 WAS SCHEDULED TO BE INITIATED ON 03-SEP-2012
     Route: 048

REACTIONS (1)
  - Herpes zoster [Unknown]
